FAERS Safety Report 6166804-2 (Version None)
Quarter: 2009Q2

REPORT INFORMATION
  Report Type: 
  Country: None (occurrence: None)
  Receive Date: 20090424
  Receipt Date: 20090420
  Transmission Date: 20091009
  Serious: Yes (Other)
  Sender: FDA-Public Use
  Company Number: US-ROCHE-607136

PATIENT
  Age: 78 Year
  Sex: Female

DRUGS (9)
  1. BONIVA [Suspect]
     Indication: DRUG USE FOR UNKNOWN INDICATION
     Route: 048
     Dates: start: 20061021
  2. BONIVA [Suspect]
     Route: 048
     Dates: start: 20070101
  3. FOSAMAX [Suspect]
     Indication: DRUG USE FOR UNKNOWN INDICATION
     Route: 065
  4. COREG [Concomitant]
  5. PHENOBARBITAL [Concomitant]
  6. LORATADINE [Concomitant]
  7. STOOL SOFTENER [Concomitant]
  8. AMBIEN [Concomitant]
  9. PRESERVISON [Concomitant]

REACTIONS (5)
  - DIARRHOEA [None]
  - DYSPEPSIA [None]
  - FALL [None]
  - IMPLANTABLE DEFIBRILLATOR INSERTION [None]
  - SPONDYLITIS [None]
